FAERS Safety Report 9462664 (Version 1)
Quarter: 2013Q3

REPORT INFORMATION
  Report Type: Spontaneous
  Country: FR (occurrence: FR)
  Receive Date: 20130816
  Receipt Date: 20130816
  Transmission Date: 20140515
  Serious: Yes (Hospitalization)
  Sender: FDA-Public Use
  Company Number: FR-ELI_LILLY_AND_COMPANY-FR201308002196

PATIENT
  Age: 64 Year
  Sex: Male

DRUGS (5)
  1. ALIMTA [Suspect]
     Indication: LUNG ADENOCARCINOMA
     Dosage: UNK
     Route: 042
     Dates: start: 20120329, end: 20130327
  2. GEMZAR [Suspect]
     Indication: LUNG ADENOCARCINOMA
     Dosage: 2480 MG, UNK
     Route: 042
     Dates: start: 20130415, end: 20130415
  3. GEMZAR [Suspect]
     Dosage: 80 % DOSE REDUCTION
     Route: 042
  4. ZOMETA [Suspect]
     Dosage: 4 MG, UNK
     Route: 042
     Dates: end: 20130415
  5. BIPROFENID [Concomitant]
     Dosage: 200 MG, UNK

REACTIONS (1)
  - Renal failure acute [Recovering/Resolving]
